FAERS Safety Report 16325778 (Version 1)
Quarter: 2019Q2

REPORT INFORMATION
  Report Type: Spontaneous
  Country: US (occurrence: US)
  Receive Date: 20190517
  Receipt Date: 20190517
  Transmission Date: 20190711
  Serious: No
  Sender: FDA-Public Use
  Company Number: US-COLLEGIUM PHARMACEUTICAL, INC.-2019CGM00054

PATIENT
  Sex: Female

DRUGS (2)
  1. XTAMPZA ER [Suspect]
     Active Substance: OXYCODONE
  2. UNSPECIFIED BENZODIAZEPINE [Suspect]
     Active Substance: BENZODIAZEPINE

REACTIONS (1)
  - Depression [Unknown]
